FAERS Safety Report 6374798-X (Version None)
Quarter: 2009Q3

REPORT INFORMATION
  Report Type: 
  Country: None (occurrence: None)
  Receive Date: 20090924
  Receipt Date: 20090916
  Transmission Date: 20100115
  Serious: Yes (Hospitalization, Other)
  Sender: FDA-Public Use
  Company Number: RU-ABBOTT-09P-251-0597648-00

PATIENT
  Age: 30 Month
  Sex: Female

DRUGS (2)
  1. DEPAKENE [Suspect]
     Indication: PETIT MAL EPILEPSY
     Route: 048
  2. DEPAKENE [Suspect]
     Route: 048

REACTIONS (5)
  - ACCIDENTAL OVERDOSE [None]
  - HYPOTONIA [None]
  - INCORRECT DOSE ADMINISTERED [None]
  - PYREXIA [None]
  - SOMNOLENCE [None]
